FAERS Safety Report 4505121-0 (Version None)
Quarter: 2004Q4

REPORT INFORMATION
  Report Type: 
  Country: None (occurrence: None)
  Receive Date: 20041021
  Receipt Date: 20040708
  Transmission Date: 20050328
  Serious: No
  Sender: FDA-Public Use
  Company Number: 2004202555US

PATIENT
  Sex: Female

DRUGS (7)
  1. SOMAVERT [Suspect]
     Indication: ACROMEGALY
     Dosage: 10 MG, QD, SUBCUTANEOUS
     Route: 058
     Dates: start: 20040122, end: 20040207
  2. PRILOSEC [Concomitant]
  3. PREMARIN [Concomitant]
  4. LEVOXYL [Concomitant]
  5. WELLBUTRIN [Concomitant]
  6. ZOLOFT [Concomitant]
  7. SANDOSTATIN [Concomitant]

REACTIONS (2)
  - FATIGUE [None]
  - INJECTION SITE REACTION [None]
